FAERS Safety Report 11317870 (Version 1)
Quarter: 2015Q3

REPORT INFORMATION
  Report Type: Report from Study
  Country: KR (occurrence: KR)
  Receive Date: 20150728
  Receipt Date: 20150728
  Transmission Date: 20151125
  Serious: No
  Sender: FDA-Public Use
  Company Number: PHHY2015KR040435

PATIENT
  Age: 65 Year
  Sex: Male

DRUGS (4)
  1. AMN107 [Suspect]
     Active Substance: NILOTINIB
     Indication: CHRONIC MYELOID LEUKAEMIA
     Dosage: 600 MG, QD
     Route: 048
     Dates: start: 20130103
  2. PRIVITUSS [Concomitant]
     Indication: UPPER RESPIRATORY TRACT INFECTION
     Dosage: 24 ML, UNK
     Route: 048
     Dates: start: 20130117, end: 20130120
  3. TIROXIN//LEVOTHYROXINE SODIUM [Concomitant]
     Indication: UPPER RESPIRATORY TRACT INFECTION
     Dosage: 500 MG, UNK
     Route: 048
     Dates: start: 20130121, end: 20130125
  4. RINOEBASTEL [Concomitant]
     Indication: UPPER RESPIRATORY TRACT INFECTION
     Dosage: 1 TSP, UNK
     Route: 048
     Dates: start: 20130103, end: 20130109

REACTIONS (2)
  - Nausea [Recovered/Resolved]
  - Hypocalcaemia [Recovered/Resolved]

NARRATIVE: CASE EVENT DATE: 20130105
